FAERS Safety Report 4644382-4 (Version None)
Quarter: 2005Q2

REPORT INFORMATION
  Report Type: 
  Country: None (occurrence: None)
  Receive Date: 20050331
  Receipt Date: 20041217
  Transmission Date: 20051028
  Serious: No
  Sender: FDA-Public Use
  Company Number: 04P-163-0283857-00

PATIENT
  Age: 53 Year
  Sex: Female
  Weight: 124 kg

DRUGS (10)
  1. HUMIRA [Suspect]
     Indication: RHEUMATOID ARTHRITIS
     Dosage: 40 MG, 1 IN 2 WK, SUBCUTANEOUS
     Route: 058
     Dates: start: 20040601, end: 20041001
  2. HUMIRA [Suspect]
     Indication: RHEUMATOID ARTHRITIS
     Dosage: 40 MG, 1 IN 2 WK, SUBCUTANEOUS
     Route: 058
     Dates: start: 20041001
  3. ZETIA [Concomitant]
  4. CLOLESTID [Concomitant]
  5. VERAPAMIL [Concomitant]
  6. HUMALOG N [Concomitant]
  7. ISOPHANE INSULIN [Concomitant]
  8. FUROSEMIDE [Concomitant]
  9. BUPROPION HYDROCHLORIDE [Concomitant]
  10. ZENAFLEX [Concomitant]

REACTIONS (3)
  - ASTHENIA [None]
  - FATIGUE [None]
  - RESPIRATORY TRACT INFECTION [None]
